FAERS Safety Report 12677308 (Version 3)
Quarter: 2017Q1

REPORT INFORMATION
  Report Type: Spontaneous
  Country: US (occurrence: US)
  Receive Date: 20160823
  Receipt Date: 20170206
  Transmission Date: 20170428
  Serious: Yes (Hospitalization, Other)
  Sender: FDA-Public Use
  Company Number: US-PFIZER INC-2016392596

PATIENT
  Sex: Female

DRUGS (1)
  1. IBRANCE [Suspect]
     Active Substance: PALBOCICLIB
     Indication: BREAST CANCER
     Dosage: 125 MG, UNK

REACTIONS (7)
  - Pneumonia [Unknown]
  - Narcolepsy [Unknown]
  - Neoplasm progression [Unknown]
  - Dehydration [Unknown]
  - Tumour marker increased [Unknown]
  - Malaise [Unknown]
  - Mycobacterium avium complex infection [Unknown]
